FAERS Safety Report 5143458-5 (Version None)
Quarter: 2006Q4

REPORT INFORMATION
  Report Type: 
  Country: None (occurrence: None)
  Receive Date: 20061101
  Receipt Date: 20061101
  Transmission Date: 20070319
  Serious: Yes (Death)
  Sender: FDA-Public Use
  Company Number: None

PATIENT
  Age: 64 Year
  Sex: Female
  Weight: 75 kg

DRUGS (8)
  1. HEPARIN [Suspect]
     Indication: ANTICOAGULANT THERAPY
     Dosage: INTRAOPERATIVELY
     Dates: start: 20060424
  2. HEPARIN LOCK-FLUSH [Suspect]
     Indication: INTRAVENOUS CATHETER MANAGEMENT
     Dosage: 100 UNITS PRN
     Dates: start: 20060430, end: 20060502
  3. ASPIRIN [Concomitant]
  4. ADVAIR DISKUS 100/50 [Concomitant]
  5. MORPHINE [Concomitant]
  6. PROTONIX [Concomitant]
  7. LISPRO INSULIN SLIDING SCALE [Concomitant]
  8. DILTIAZEM CONTINUOUS INFUSION [Concomitant]

REACTIONS (5)
  - ACUTE RESPIRATORY DISTRESS SYNDROME [None]
  - ANTI-PLATELET ANTIBODY POSITIVE [None]
  - HEPARIN-INDUCED THROMBOCYTOPENIA [None]
  - MULTI-ORGAN FAILURE [None]
  - PULMONARY EMBOLISM [None]
